FAERS Safety Report 25977905 (Version 1)
Quarter: 2025Q4

REPORT INFORMATION
  Report Type: Spontaneous
  Country: EU (occurrence: None)
  Receive Date: 20251030
  Receipt Date: 20251030
  Transmission Date: 20260117
  Serious: Yes (Hospitalization)
  Sender: UCB
  Company Number: EU-UCBSA-2025067545

PATIENT
  Age: 87 Year

DRUGS (1)
  1. KEPPRA [Suspect]
     Active Substance: LEVETIRACETAM
     Indication: Product used for unknown indication
     Dosage: UNK

REACTIONS (4)
  - Respiratory disorder [Not Recovered/Not Resolved]
  - Vomiting [Not Recovered/Not Resolved]
  - Headache [Not Recovered/Not Resolved]
  - General physical health deterioration [Not Recovered/Not Resolved]
